FAERS Safety Report 5022663-2 (Version None)
Quarter: 2006Q2

REPORT INFORMATION
  Report Type: 
  Country: None (occurrence: None)
  Receive Date: 20060501
  Receipt Date: 20060206
  Transmission Date: 20061013
  Serious: Yes (Other)
  Sender: FDA-Public Use
  Company Number: 200610736BWH

PATIENT
  Age: 70 Year
  Sex: Female
  Weight: 102.0593 kg

DRUGS (10)
  1. NEXAVAR [Suspect]
     Indication: RENAL CELL CARCINOMA STAGE UNSPECIFIED
     Dosage: 400 MG, BID, ORAL
     Route: 048
     Dates: start: 20060202, end: 20060201
  2. NEXAVAR [Suspect]
     Indication: RENAL CELL CARCINOMA STAGE UNSPECIFIED
     Dosage: 400 MG, BID, ORAL
     Route: 048
     Dates: start: 20060201
  3. TOPROL-XL [Concomitant]
  4. ACTOS [Concomitant]
  5. AMILORIDE HCL [Concomitant]
  6. METOLAZONE [Concomitant]
  7. POTASSIUM [Concomitant]
  8. LASIX [Concomitant]
  9. ECOTRIN [Concomitant]
  10. INSULIN [Concomitant]

REACTIONS (6)
  - BLOOD SODIUM DECREASED [None]
  - DIARRHOEA [None]
  - DYSPHONIA [None]
  - FATIGUE [None]
  - PYREXIA [None]
  - VOMITING [None]
